FAERS Safety Report 5502665-X (Version None)
Quarter: 2007Q4

REPORT INFORMATION
  Report Type: 
  Country: None (occurrence: None)
  Receive Date: 20071029
  Receipt Date: 20071015
  Transmission Date: 20080405
  Serious: Yes (Death)
  Sender: FDA-Public Use
  Company Number: CIP07002196

PATIENT
  Sex: Male

DRUGS (2)
  1. NITROFURANTOIN MACROCRYSTALS(NITROFURANTOIN, MACROCRYSTALS) CAPSULE, U [Suspect]
     Dosage: 100 MG, ORAL; 100 MG, ORAL
     Route: 048
     Dates: start: 19940201
  2. NITROFURANTOIN MACROCRYSTALS(NITROFURANTOIN, MACROCRYSTALS) CAPSULE, U [Suspect]
     Dosage: 100 MG, ORAL; 100 MG, ORAL
     Route: 048
     Dates: start: 19940801

REACTIONS (4)
  - DIALYSIS [None]
  - HEPATIC FAILURE [None]
  - RENAL FAILURE [None]
  - WEIGHT DECREASED [None]
